FAERS Safety Report 13680256 (Version 4)
Quarter: 2017Q3

REPORT INFORMATION
  Report Type: Spontaneous
  Country: KR (occurrence: KR)
  Receive Date: 20170622
  Receipt Date: 20170825
  Transmission Date: 20171127
  Serious: Yes (Other)
  Sender: FDA-Public Use
  Company Number: KR-009507513-1702KOR006799

PATIENT
  Age: 68 Year
  Sex: Male
  Weight: 70 kg

DRUGS (25)
  1. GEMCITE [Concomitant]
     Active Substance: GEMCITABINE HYDROCHLORIDE
     Dosage: 2287.5 MG, CYCLE 2, QD
     Route: 042
     Dates: start: 20160926, end: 20160926
  2. DEXAMETHASONE SODIUM PHOSPHATE. [Concomitant]
     Active Substance: DEXAMETHASONE SODIUM PHOSPHATE
     Dosage: 5 MG, BID
     Route: 042
     Dates: start: 20160912, end: 20160912
  3. CISPLAN [Concomitant]
     Active Substance: CISPLATIN
     Dosage: 109.8 MG, CYCLE 2, QD
     Route: 042
     Dates: start: 20160912, end: 20160912
  4. ANYCOUGH [Concomitant]
     Active Substance: THEOBROMINE
     Indication: COUGH
     Dosage: 300 MG, BID
     Route: 048
     Dates: start: 20151110
  5. ABSTRAL [Concomitant]
     Active Substance: FENTANYL CITRATE
     Indication: GROIN PAIN
     Dosage: 100 MICROGRAM, TID
     Route: 060
     Dates: start: 20160830
  6. LASIX [Concomitant]
     Active Substance: FUROSEMIDE
     Indication: PROPHYLAXIS
     Dosage: 20 MG, QD
     Route: 042
     Dates: start: 20160819, end: 20160819
  7. FOLSAN [Concomitant]
     Active Substance: FOLIC ACID
     Indication: PREMEDICATION
     Dosage: 1 MG, QD
     Route: 048
     Dates: start: 20160809, end: 20160829
  8. GEMCITE [Concomitant]
     Active Substance: GEMCITABINE HYDROCHLORIDE
     Indication: NON-SMALL CELL LUNG CANCER
     Dosage: 2287.5 MG, QD, CYCLE 1
     Route: 042
     Dates: start: 20160819, end: 20160819
  9. SURFOLASE [Concomitant]
     Indication: PRODUCTIVE COUGH
     Dosage: 100 MG, BID
     Route: 048
     Dates: start: 20151120
  10. MECOOL [Concomitant]
     Indication: PROPHYLAXIS OF NAUSEA AND VOMITING
     Dosage: 2 ML, QD
     Route: 042
     Dates: start: 20160830, end: 20160830
  11. EMEND (FOSAPREPITANT DIMEGLUMINE) [Suspect]
     Active Substance: FOSAPREPITANT DIMEGLUMINE
     Indication: PROPHYLAXIS OF NAUSEA AND VOMITING
     Dosage: 150 MG, ONCE
     Route: 042
     Dates: start: 20160819, end: 20160819
  12. EMEND (FOSAPREPITANT DIMEGLUMINE) [Suspect]
     Active Substance: FOSAPREPITANT DIMEGLUMINE
     Dosage: 150 MG, ONCE
     Route: 042
     Dates: start: 20160912, end: 20160912
  13. GEMCITE [Concomitant]
     Active Substance: GEMCITABINE HYDROCHLORIDE
     Dosage: 2287.5 MG, CYCLE 2, QD
     Route: 042
     Dates: start: 20160912, end: 20160912
  14. TACOPEN [Concomitant]
     Indication: GROIN PAIN
     Dosage: 1 CAPSULE, TID
     Route: 048
     Dates: start: 20160819
  15. MECOOL [Concomitant]
     Dosage: 2 ML, QD
     Route: 042
     Dates: start: 20160926, end: 20160926
  16. CISPLAN [Concomitant]
     Active Substance: CISPLATIN
     Indication: NON-SMALL CELL LUNG CANCER
     Dosage: 109.8 MG, CYCLE 1, QD
     Route: 042
     Dates: start: 20160819, end: 20160819
  17. DEXAMETHASONE SODIUM PHOSPHATE. [Concomitant]
     Active Substance: DEXAMETHASONE SODIUM PHOSPHATE
     Indication: PREMEDICATION
     Dosage: 5 MG, BID
     Route: 042
     Dates: start: 20160819, end: 20160819
  18. DEXAMETHASONE SODIUM PHOSPHATE. [Concomitant]
     Active Substance: DEXAMETHASONE SODIUM PHOSPHATE
     Dosage: 5 MG, QD
     Route: 042
     Dates: start: 20160926, end: 20160926
  19. ALOXI [Concomitant]
     Active Substance: PALONOSETRON HYDROCHLORIDE
     Dosage: 5 ML, QD
     Route: 042
     Dates: start: 20160912, end: 20160912
  20. ANORO ELLIPTA [Concomitant]
     Active Substance: UMECLIDINIUM BROMIDE\VILANTEROL TRIFENATATE
     Indication: CHRONIC OBSTRUCTIVE PULMONARY DISEASE
     Dosage: 1 DF, QD
     Route: 055
     Dates: start: 20160418
  21. GEMCITE [Concomitant]
     Active Substance: GEMCITABINE HYDROCHLORIDE
     Dosage: 2287.5 MG, QD, CYCLE 1
     Route: 042
     Dates: start: 20160830, end: 20160830
  22. DEXAMETHASONE SODIUM PHOSPHATE. [Concomitant]
     Active Substance: DEXAMETHASONE SODIUM PHOSPHATE
     Indication: PROPHYLAXIS OF NAUSEA AND VOMITING
     Dosage: 5 MG, QD
     Route: 042
     Dates: start: 20160830, end: 20160830
  23. ALOXI [Concomitant]
     Active Substance: PALONOSETRON HYDROCHLORIDE
     Indication: PROPHYLAXIS OF NAUSEA AND VOMITING
     Dosage: 5 ML, QD
     Route: 042
     Dates: start: 20160819, end: 20160819
  24. LASIX [Concomitant]
     Active Substance: FUROSEMIDE
     Dosage: 20 MG, QD
     Route: 042
     Dates: start: 20160912, end: 20160912
  25. MEGACE [Concomitant]
     Active Substance: MEGESTROL ACETATE
     Indication: DECREASED APPETITE
     Dosage: 5 ML, QD
     Route: 048
     Dates: start: 20160118

REACTIONS (5)
  - Anaemia [Recovered/Resolved]
  - Blood creatinine increased [Recovered/Resolved]
  - Thrombocytopenia [Recovered/Resolved]
  - Purpura [Recovered/Resolved]
  - Radiation pneumonitis [Not Recovered/Not Resolved]

NARRATIVE: CASE EVENT DATE: 20160830
